FAERS Safety Report 24668451 (Version 1)
Quarter: 2024Q4

REPORT INFORMATION
  Report Type: Spontaneous
  Country: GB (occurrence: GB)
  Receive Date: 20241127
  Receipt Date: 20241127
  Transmission Date: 20250114
  Serious: Yes (Disabling, Other)
  Sender: AUROBINDO
  Company Number: GB-MHRA-MED-202411151043053360-JFQLV

PATIENT
  Age: 55 Year
  Sex: Female
  Weight: 74 kg

DRUGS (2)
  1. ALENDRONIC ACID [Suspect]
     Active Substance: ALENDRONIC ACID
     Indication: Osteoporosis
     Dosage: UNK
     Route: 065
     Dates: start: 20230901, end: 20231224
  2. RISEDRONATE SODIUM [Suspect]
     Active Substance: RISEDRONATE SODIUM
     Indication: Osteoporosis
     Dosage: UNK
     Route: 065
     Dates: end: 20240402

REACTIONS (4)
  - Confusional state [Recovered/Resolved]
  - Bone pain [Recovered/Resolved]
  - Back pain [Recovered/Resolved]
  - Pain in extremity [Recovered/Resolved]

NARRATIVE: CASE EVENT DATE: 20240201
